FAERS Safety Report 6121274-5 (Version None)
Quarter: 2009Q1

REPORT INFORMATION
  Report Type: 
  Country: None (occurrence: None)
  Receive Date: 20090317
  Receipt Date: 20090316
  Transmission Date: 20090719
  Serious: Yes (Death)
  Sender: FDA-Public Use
  Company Number: US-RB-011771-09

PATIENT
  Age: 31 Year
  Sex: Male

DRUGS (3)
  1. SUBOXONE [Suspect]
     Indication: DRUG DEPENDENCE
     Dosage: UNKNOWN DOSAGE
     Route: 060
     Dates: start: 20060101, end: 20080601
  2. ADDERALL 10 [Concomitant]
     Indication: ATTENTION DEFICIT/HYPERACTIVITY DISORDER
     Dosage: UNKNOWN DOSAGE
     Route: 048
  3. ALCOHOL [Suspect]
     Indication: ALCOHOL ABUSE

REACTIONS (2)
  - ANEURYSM [None]
  - HEADACHE [None]
